FAERS Safety Report 18174814 (Version 1)
Quarter: 2020Q3

REPORT INFORMATION
  Report Type: Spontaneous
  Country: US (occurrence: US)
  Receive Date: 20200820
  Receipt Date: 20200820
  Transmission Date: 20201103
  Serious: Yes (Other)
  Sender: FDA-Public Use
  Company Number: US-PFIZER INC-2020322387

PATIENT
  Age: 69 Year
  Sex: Female
  Weight: 70.3 kg

DRUGS (3)
  1. VYNDAMAX [Suspect]
     Active Substance: TAFAMIDIS
     Indication: LIVER DISORDER
  2. CARVEDILOL. [Concomitant]
     Active Substance: CARVEDILOL
  3. VYNDAMAX [Suspect]
     Active Substance: TAFAMIDIS
     Indication: CARDIAC DISORDER
     Dosage: 61 MG, 1X/DAY
     Route: 048
     Dates: start: 202005

REACTIONS (4)
  - Peripheral swelling [Unknown]
  - Product use in unapproved indication [Unknown]
  - Fluid retention [Unknown]
  - Off label use [Unknown]
